FAERS Safety Report 23229740 (Version 2)
Quarter: 2024Q3

REPORT INFORMATION
  Report Type: Spontaneous
  Country: US (occurrence: US)
  Receive Date: 20231127
  Receipt Date: 20240819
  Transmission Date: 20241017
  Serious: No
  Sender: STRIDES
  Company Number: US-STRIDES ARCOLAB LIMITED-2023SP014104

PATIENT
  Age: 58 Year
  Sex: Female

DRUGS (10)
  1. CYCLOSPORINE [Suspect]
     Active Substance: CYCLOSPORINE
     Indication: Chronic spontaneous urticaria
     Dosage: 1.25 MILLIGRAM/KILOGRAM, QD
     Route: 048
  2. CYCLOSPORINE [Suspect]
     Active Substance: CYCLOSPORINE
     Dosage: 1.25 MILLIGRAM/KILOGRAM, QD
     Route: 065
  3. CYCLOSPORINE [Suspect]
     Active Substance: CYCLOSPORINE
     Dosage: 3 MILLIGRAM/KILOGRAM, QD PER DAY (DOSE INCREASED)
     Route: 048
  4. CYCLOSPORINE [Suspect]
     Active Substance: CYCLOSPORINE
     Dosage: 1 MILLIGRAM/KILOGRAM, QD
     Route: 048
  5. RANITIDINE [Suspect]
     Active Substance: RANITIDINE
     Indication: Chronic spontaneous urticaria
     Dosage: 150 MILLIGRAM, BID
     Route: 065
  6. MONTELUKAST [Suspect]
     Active Substance: MONTELUKAST SODIUM
     Indication: Chronic spontaneous urticaria
     Dosage: 10 MILLIGRAM, QD
     Route: 065
  7. HYDROXYCHLOROQUINE [Suspect]
     Active Substance: HYDROXYCHLOROQUINE
     Indication: Chronic spontaneous urticaria
     Dosage: UNK
     Route: 065
  8. DAPSONE [Suspect]
     Active Substance: DAPSONE
     Indication: Chronic spontaneous urticaria
     Dosage: UNK
     Route: 065
  9. OMALIZUMAB [Suspect]
     Active Substance: OMALIZUMAB
     Indication: Chronic spontaneous urticaria
     Dosage: 300 MILLIGRAM, EVERY 4 WEEKS
     Route: 065
  10. CETIRIZINE [Concomitant]
     Active Substance: CETIRIZINE HYDROCHLORIDE
     Indication: Chronic spontaneous urticaria
     Dosage: 20 MILLIGRAM, BID
     Route: 065

REACTIONS (3)
  - Blood creatinine increased [Recovered/Resolved]
  - Drug ineffective [Unknown]
  - Off label use [Unknown]
